FAERS Safety Report 9538376 (Version 1)
Quarter: 2013Q3

REPORT INFORMATION
  Report Type: Spontaneous
  Country: US (occurrence: US)
  Receive Date: 20130920
  Receipt Date: 20130920
  Transmission Date: 20140515
  Serious: No
  Sender: FDA-Public Use
  Company Number: US-PFIZER INC-2013269733

PATIENT
  Age: 51 Year
  Sex: Male
  Weight: 72.56 kg

DRUGS (4)
  1. GABAPENTIN [Suspect]
     Indication: FIBROMYALGIA
     Dosage: 150 MG, 2X/DAY
  2. LYRICA [Suspect]
     Indication: FIBROMYALGIA
     Dosage: 150 MG, 3X/DAY
  3. TRAZODONE [Concomitant]
     Indication: INSOMNIA
     Dosage: UNK
  4. TEMAZEPAM [Concomitant]
     Indication: INSOMNIA
     Dosage: UNK

REACTIONS (7)
  - Off label use [Unknown]
  - Discomfort [Unknown]
  - Muscular weakness [Unknown]
  - Gait disturbance [Unknown]
  - Pain in extremity [Unknown]
  - Muscle disorder [Unknown]
  - Drug ineffective for unapproved indication [Unknown]
